FAERS Safety Report 5096986-5 (Version None)
Quarter: 2006Q3

REPORT INFORMATION
  Report Type: 
  Country: None (occurrence: None)
  Receive Date: 20060831
  Receipt Date: 20060831
  Transmission Date: 20061208
  Serious: Yes (Life-Threatening, Hospitalization)
  Sender: FDA-Public Use
  Company Number: None

PATIENT
  Age: 71 Year
  Sex: Male

DRUGS (4)
  1. LISINOPRIL [Suspect]
     Indication: HYPERTENSION
     Dosage: 20MG  DAILY  PO  APPROXIMATELY  15 YEARS
     Route: 048
  2. SIMVASTATIN [Concomitant]
  3. FELODIPINE [Concomitant]
  4. OMEPRAZOLE [Concomitant]

REACTIONS (3)
  - ANGIONEUROTIC OEDEMA [None]
  - DYSPHAGIA [None]
  - PARAESTHESIA [None]
